FAERS Safety Report 5219119-0 (Version None)
Quarter: 2007Q1

REPORT INFORMATION
  Report Type: 
  Country: None (occurrence: None)
  Receive Date: 20070124
  Receipt Date: 20070124
  Transmission Date: 20070707
  Serious: Yes (Death)
  Sender: FDA-Public Use
  Company Number: None

PATIENT
  Sex: Female
  Weight: 58.9676 kg

DRUGS (1)
  1. CIPRO XR [Suspect]
     Indication: CYSTITIS
     Dosage: 500 MG  1 PER DAY 5 DAYS  ORAL
     Route: 048
     Dates: start: 20061129, end: 20061203

REACTIONS (1)
  - CEREBRAL HAEMORRHAGE [None]
